FAERS Safety Report 8119179-3 (Version None)
Quarter: 2012Q1

REPORT INFORMATION
  Report Type: 
  Country: None (occurrence: None)
  Receive Date: 20120207
  Receipt Date: 20120125
  Transmission Date: 20120608
  Serious: Yes (Hospitalization, Other)
  Sender: FDA-Public Use
  Company Number: JP-ROCHE-1014109

PATIENT
  Sex: Male

DRUGS (23)
  1. ROACTEMRA [Suspect]
     Route: 041
     Dates: start: 20090807, end: 20090807
  2. ROACTEMRA [Suspect]
     Dosage: DOSAGE IS UNCERTAIN.
     Route: 041
     Dates: start: 20100507, end: 20100702
  3. PROGRAF [Concomitant]
     Route: 048
     Dates: start: 20090710, end: 20090806
  4. NABOAL [Concomitant]
     Route: 048
  5. FAMOTIDINE [Concomitant]
     Indication: PROPHYLAXIS
     Route: 048
  6. ROACTEMRA [Suspect]
     Indication: RHEUMATOID ARTHRITIS
     Route: 041
     Dates: start: 20090417, end: 20090417
  7. ROACTEMRA [Suspect]
     Route: 041
     Dates: start: 20090515, end: 20090515
  8. ROACTEMRA [Suspect]
     Route: 041
     Dates: start: 20090612, end: 20090612
  9. PROGRAF [Concomitant]
     Route: 048
     Dates: start: 20090807, end: 20091105
  10. RISEDRONATE SODIUM [Concomitant]
     Indication: OSTEOPOROSIS
     Route: 048
  11. GLORIAMIN [Concomitant]
     Indication: PROPHYLAXIS
     Route: 048
  12. LOXONIN [Concomitant]
     Indication: RHEUMATOID ARTHRITIS
     Route: 048
  13. ROACTEMRA [Suspect]
     Route: 041
     Dates: start: 20091007, end: 20091007
  14. PROGRAF [Concomitant]
     Indication: RHEUMATOID ARTHRITIS
     Route: 048
     Dates: end: 20090709
  15. ROACTEMRA [Suspect]
     Route: 041
     Dates: start: 20100409, end: 20100409
  16. PREDNISOLONE AND PREDNISOLONE ACETATE AND PREDNISOLONE SODIUM SUCCINAT [Suspect]
     Indication: RHEUMATOID ARTHRITIS
     Route: 048
     Dates: end: 20090806
  17. PREDNISOLONE AND PREDNISOLONE ACETATE AND PREDNISOLONE SODIUM SUCCINAT [Suspect]
     Route: 048
     Dates: start: 20090807
  18. PREDNISOLONE AND PREDNISOLONE ACETATE AND PREDNISOLONE SODIUM SUCCINAT [Suspect]
     Route: 048
  19. NABOAL [Concomitant]
     Indication: RHEUMATOID ARTHRITIS
     Route: 048
  20. MUCOSTA [Concomitant]
     Indication: PROPHYLAXIS
     Route: 048
  21. ROACTEMRA [Suspect]
     Route: 041
     Dates: start: 20090710, end: 20090710
  22. ROACTEMRA [Suspect]
     Route: 041
     Dates: start: 20090911, end: 20090911
  23. FAMOTIDINE [Concomitant]
     Indication: PROPHYLAXIS
     Route: 048

REACTIONS (5)
  - LUNG INFECTION PSEUDOMONAL [None]
  - PNEUMONIA BACTERIAL [None]
  - SEPSIS [None]
  - ATYPICAL MYCOBACTERIAL INFECTION [None]
  - INTERSTITIAL LUNG DISEASE [None]
